FAERS Safety Report 5973143-9 (Version None)
Quarter: 2008Q4

REPORT INFORMATION
  Report Type: 
  Country: None (occurrence: None)
  Receive Date: 20081201
  Receipt Date: 20081128
  Transmission Date: 20090506
  Serious: Yes (Hospitalization, Other)
  Sender: FDA-Public Use
  Company Number: GB-ASTRAZENECA-2008GB02241

PATIENT
  Age: 68 Year
  Sex: Female

DRUGS (10)
  1. ESOMEPRAZOLE MAGNESIUM [Suspect]
     Route: 048
     Dates: end: 20081013
  2. CITALOPRAM HYDROBROMIDE [Suspect]
     Indication: DEPRESSION
     Route: 048
     Dates: end: 20081012
  3. LANSOPRAZOLE [Suspect]
     Route: 048
  4. CO-DYDRAMOL [Concomitant]
     Route: 048
  5. NIFEDIPINE [Concomitant]
     Route: 048
  6. PERINDOPRIL [Concomitant]
     Route: 048
  7. ALBUTEROL SULFATE [Concomitant]
     Route: 055
  8. SERETIDE [Concomitant]
     Route: 055
  9. VITAMIN B COMPLEX CAP [Concomitant]
     Route: 048
  10. ZOPICLONE [Concomitant]
     Route: 048

REACTIONS (4)
  - CHEST PAIN [None]
  - CHRONIC OBSTRUCTIVE PULMONARY DISEASE [None]
  - CONDITION AGGRAVATED [None]
  - HYPONATRAEMIA [None]
